FAERS Safety Report 11185458 (Version 1)
Quarter: 2015Q2

REPORT INFORMATION
  Report Type: Spontaneous
  Country: US (occurrence: US)
  Receive Date: 20150612
  Receipt Date: 20150612
  Transmission Date: 20150821
  Serious: Yes (Other)
  Sender: FDA-Public Use
  Company Number: US-ELI_LILLY_AND_COMPANY-US201506004210

PATIENT
  Age: 19 Year
  Sex: Female

DRUGS (2)
  1. NIFEREX                            /00023531/ [Concomitant]
     Dosage: 150 MG, UNKNOWN
  2. PROZAC [Suspect]
     Active Substance: FLUOXETINE HYDROCHLORIDE
     Indication: DEPRESSION
     Dosage: 20 MG, QD
     Route: 065

REACTIONS (4)
  - Maternal exposure during pregnancy [Recovered/Resolved]
  - Failed induction of labour [Recovered/Resolved]
  - Gestational hypertension [Unknown]
  - Gestational diabetes [Unknown]
